FAERS Safety Report 5636102-1 (Version None)
Quarter: 2008Q1

REPORT INFORMATION
  Report Type: 
  Country: None (occurrence: None)
  Receive Date: 20080225
  Receipt Date: 20080214
  Transmission Date: 20080703
  Serious: Yes (Other)
  Sender: FDA-Public Use
  Company Number: US-JNJFOC-20080203910

PATIENT
  Sex: Female
  Weight: 58.97 kg

DRUGS (5)
  1. FENTANYL TRANSDERMAL SYSTEM [Suspect]
     Indication: PAIN
     Dosage: 1X 100 UG/HR PATCH PLUS 1X 25 UG/HR PATCH
     Route: 062
  2. THYROID TAB [Concomitant]
     Indication: HYPERTHYROIDISM
     Route: 048
  3. BACLOFEN [Concomitant]
     Indication: MUSCLE RELAXANT THERAPY
     Route: 048
  4. ZETIA [Concomitant]
     Route: 048
  5. PRILOSEC [Concomitant]
     Indication: GASTROOESOPHAGEAL REFLUX DISEASE
     Route: 048

REACTIONS (3)
  - CONFUSIONAL STATE [None]
  - DIZZINESS [None]
  - ROAD TRAFFIC ACCIDENT [None]
